FAERS Safety Report 6641672-0 (Version None)
Quarter: 2010Q1

REPORT INFORMATION
  Report Type: 
  Country: None (occurrence: None)
  Receive Date: 20100316
  Receipt Date: 20090729
  Transmission Date: 20100710
  Serious: Yes (Disabling, Other)
  Sender: FDA-Public Use
  Company Number: APP200801230

PATIENT
  Age: 18 Year
  Sex: Female

DRUGS (3)
  1. SENSORCAINE [Suspect]
     Indication: ARTHROSCOPIC SURGERY
     Dosage: SEE IMAGE
     Route: 014
  2. SORENSON AMBIT PAIN PUMP [Suspect]
     Indication: DRUG USE FOR UNKNOWN INDICATION
     Dosage: LEFT SHOULDER
  3. PAIN PUMP [Suspect]
     Indication: DRUG USE FOR UNKNOWN INDICATION
     Dosage: RIGHT SHOULDER

REACTIONS (3)
  - CHONDROLYSIS [None]
  - INSOMNIA [None]
  - PAIN [None]
